FAERS Safety Report 8559730-2 (Version None)
Quarter: 2012Q3

REPORT INFORMATION
  Report Type: 
  Country: None (occurrence: None)
  Receive Date: 20120802
  Receipt Date: 20120730
  Transmission Date: 20120928
  Serious: No
  Sender: FDA-Public Use
  Company Number: US-PFIZER INC-2012184494

PATIENT
  Sex: Female
  Weight: 60.771 kg

DRUGS (2)
  1. PREMARIN [Suspect]
     Dosage: UNK, 2X/WEEK
     Route: 067
     Dates: start: 20120701, end: 20120701
  2. PREMARIN [Suspect]
     Indication: MENOPAUSAL DISORDER
     Dosage: UNK, 2X/WEEK
     Route: 067
     Dates: start: 20120101, end: 20120301

REACTIONS (4)
  - HYPERSENSITIVITY [None]
  - INFECTION [None]
  - VULVOVAGINAL RASH [None]
  - VULVOVAGINAL BURNING SENSATION [None]
